FAERS Safety Report 5677685-5 (Version None)
Quarter: 2008Q1

REPORT INFORMATION
  Report Type: 
  Country: None (occurrence: None)
  Receive Date: 20080318
  Receipt Date: 20080305
  Transmission Date: 20080703
  Serious: Yes (Other)
  Sender: FDA-Public Use
  Company Number: 100#08#2008-01277

PATIENT
  Age: 70 Year
  Sex: Male

DRUGS (1)
  1. DOXAZOSIN MESYLATE [Suspect]
     Indication: HYPERTENSION
     Dosage: 4 MG ONCE DAILY
     Route: 048

REACTIONS (3)
  - CATARACT OPERATION COMPLICATION [None]
  - FLOPPY IRIS SYNDROME [None]
  - MIOSIS [None]
